FAERS Safety Report 4559610-3 (Version None)
Quarter: 2005Q1

REPORT INFORMATION
  Report Type: 
  Country: None (occurrence: None)
  Receive Date: 20050124
  Receipt Date: 20050111
  Transmission Date: 20050727
  Serious: Yes (Other)
  Sender: FDA-Public Use
  Company Number: GB-ABBOTT-05P-167-0286194-00

PATIENT
  Age: 58 Year
  Sex: Male

DRUGS (8)
  1. VALPROATE SODIUM [Suspect]
     Indication: BIPOLAR DISORDER
     Route: 048
     Dates: start: 20020816, end: 20021031
  2. SIMVASTATIN [Suspect]
     Indication: DRUG USE FOR UNKNOWN INDICATION
     Route: 065
     Dates: start: 20020801, end: 20021031
  3. NEFAZODONE HCL [Suspect]
     Indication: DRUG USE FOR UNKNOWN INDICATION
     Route: 048
     Dates: start: 20020913, end: 20020917
  4. LITHIUM [Concomitant]
     Indication: DRUG USE FOR UNKNOWN INDICATION
     Route: 048
     Dates: start: 20021023
  5. BUSPIRONE [Concomitant]
     Indication: ANXIETY
     Route: 048
     Dates: start: 20021007
  6. BENDROFLUMETHIAZIDE [Concomitant]
     Indication: HYPERTENSION
     Route: 048
  7. HALOPERIDOL [Concomitant]
     Indication: HYPOMANIA
     Route: 048
     Dates: start: 20020819, end: 20020826
  8. DIAZEPAM [Concomitant]
     Indication: ANXIETY
     Route: 048
     Dates: start: 20020829, end: 20020904

REACTIONS (3)
  - ACTIVATED PARTIAL THROMBOPLASTIN TIME PROLONGED [None]
  - HEPATIC NECROSIS [None]
  - PROTHROMBIN TIME PROLONGED [None]
